FAERS Safety Report 4808986-8 (Version None)
Quarter: 2005Q4

REPORT INFORMATION
  Report Type: 
  Country: None (occurrence: None)
  Receive Date: 20051021
  Receipt Date: 20020523
  Transmission Date: 20060501
  Serious: Yes (Other)
  Sender: FDA-Public Use
  Company Number: GBS020510773

PATIENT
  Age: 64 Year
  Sex: Female
  Weight: 56 kg

DRUGS (5)
  1. ZYPREXA [Suspect]
     Indication: DEPRESSION
     Route: 048
     Dates: start: 20020409, end: 20020503
  2. MIRTAZAPINE [Concomitant]
  3. VENLAFAXINE [Concomitant]
  4. LORAZEPAM [Concomitant]
  5. CITALOPRAM [Concomitant]

REACTIONS (1)
  - NEUTROPENIA [None]
